FAERS Safety Report 7546263-5 (Version None)
Quarter: 2011Q2

REPORT INFORMATION
  Report Type: 
  Country: None (occurrence: None)
  Receive Date: 20110614
  Receipt Date: 20060125
  Transmission Date: 20111010
  Serious: Yes (Hospitalization)
  Sender: FDA-Public Use
  Company Number: PHNR2005AU01568

PATIENT
  Sex: Female

DRUGS (5)
  1. CLOZAPINE [Suspect]
     Indication: SCHIZOAFFECTIVE DISORDER
     Dosage: 0 - 100 MG/DAY
     Dates: start: 20051010, end: 20051024
  2. AVAPRO [Concomitant]
  3. ARIPIPRAZOLE [Concomitant]
  4. VALPROATE SODIUM [Concomitant]
  5. ABILIFY [Concomitant]

REACTIONS (9)
  - FEELING COLD [None]
  - SCHIZOAFFECTIVE DISORDER [None]
  - RENAL FAILURE [None]
  - OXYGEN SATURATION DECREASED [None]
  - HYPERHIDROSIS [None]
  - PALLOR [None]
  - DEHYDRATION [None]
  - DIARRHOEA [None]
  - HYPOTENSION [None]
